FAERS Safety Report 10944063 (Version 1)
Quarter: 2015Q1

REPORT INFORMATION
  Report Type: Spontaneous
  Country: US (occurrence: US)
  Receive Date: 20150323
  Receipt Date: 20150323
  Transmission Date: 20150721
  Serious: No
  Sender: FDA-Public Use
  Company Number: US-ASTRAZENECA-2015SE23060

PATIENT
  Sex: Female
  Weight: 86.2 kg

DRUGS (5)
  1. MOBIC [Concomitant]
     Active Substance: MELOXICAM
  2. ZOCOR [Concomitant]
     Active Substance: SIMVASTATIN
  3. CRESTOR [Suspect]
     Active Substance: ROSUVASTATIN CALCIUM
     Route: 048
  4. LYRICA [Suspect]
     Active Substance: PREGABALIN
     Indication: SCIATICA
     Dosage: ONE IN MORNING AND ONE AT NIGHT
     Route: 065
  5. ISOSORBIDE MONO [Concomitant]

REACTIONS (5)
  - Product use issue [Unknown]
  - Neuralgia [Unknown]
  - Cardiac disorder [Unknown]
  - Pain [Not Recovered/Not Resolved]
  - Arthritis [Unknown]
